FAERS Safety Report 10100714 (Version 1)
Quarter: 2014Q2

REPORT INFORMATION
  Report Type: Report from Study
  Country: US (occurrence: US)
  Receive Date: 20140423
  Receipt Date: 20140423
  Transmission Date: 20141212
  Serious: Yes (Hospitalization, Other)
  Sender: FDA-Public Use
  Company Number: US-ABBVIE-14P-163-1225521-00

PATIENT
  Age: 14 Year
  Sex: Female
  Weight: 34.05 kg

DRUGS (3)
  1. HUMIRA [Suspect]
     Indication: CROHN^S DISEASE
     Dates: start: 201206, end: 201206
  2. HUMIRA [Suspect]
     Dates: start: 201206, end: 201209
  3. HUMIRA [Suspect]
     Dates: start: 201211, end: 201308

REACTIONS (8)
  - Intestinal perforation [Recovered/Resolved]
  - Drug ineffective [Not Recovered/Not Resolved]
  - Pyrexia [Recovered/Resolved]
  - Gastrointestinal haemorrhage [Recovered/Resolved]
  - Vomiting [Recovered/Resolved]
  - Small intestinal haemorrhage [Recovered/Resolved]
  - Weight gain poor [Not Recovered/Not Resolved]
  - Intestinal ulcer [Not Recovered/Not Resolved]
